FAERS Safety Report 10312578 (Version 1)
Quarter: 2014Q3

REPORT INFORMATION
  Report Type: Spontaneous
  Country: FR (occurrence: FR)
  Receive Date: 20140718
  Receipt Date: 20140718
  Transmission Date: 20150326
  Serious: Yes (Hospitalization, Other)
  Sender: FDA-Public Use
  Company Number: FR-BRISTOL-MYERS SQUIBB COMPANY-21199195

PATIENT
  Age: 79 Year
  Sex: Female

DRUGS (12)
  1. BISOPROLOL [Concomitant]
     Active Substance: BISOPROLOL
  2. AMLOR [Concomitant]
     Active Substance: AMLODIPINE BESYLATE
  3. INEXIUM [Concomitant]
     Active Substance: ESOMEPRAZOLE
  4. CORDARONE [Concomitant]
     Active Substance: AMIODARONE HYDROCHLORIDE
  5. VALSARTAN. [Concomitant]
     Active Substance: VALSARTAN
  6. KALEORID [Concomitant]
     Active Substance: POTASSIUM CHLORIDE
  7. ARAVA [Concomitant]
     Active Substance: LEFLUNOMIDE
  8. TOPALGIC [Concomitant]
     Active Substance: TRAMADOL
     Dosage: 1DF=150
  9. MODOPAR [Concomitant]
     Active Substance: BENSERAZIDE HYDROCHLORIDE\LEVODOPA
  10. PRAZEPAM [Concomitant]
     Active Substance: PRAZEPAM
  11. COUMADINE [Suspect]
     Active Substance: WARFARIN SODIUM
     Indication: ATRIAL FIBRILLATION
     Route: 048
     Dates: start: 201312, end: 20140303
  12. CORTANCYL [Concomitant]
     Active Substance: PREDNISONE

REACTIONS (4)
  - Anaemia [Unknown]
  - International normalised ratio increased [Unknown]
  - Hypotension [Unknown]
  - Haematuria [Recovered/Resolved]

NARRATIVE: CASE EVENT DATE: 201401
